FAERS Safety Report 10353190 (Version 1)
Quarter: 2014Q3

REPORT INFORMATION
  Report Type: Report from Study
  Country: VE (occurrence: VE)
  Receive Date: 20140730
  Receipt Date: 20140730
  Transmission Date: 20150326
  Serious: Yes (Death, Hospitalization)
  Sender: FDA-Public Use
  Company Number: PHHY2014VE093298

PATIENT
  Age: 49 Year
  Sex: Male

DRUGS (6)
  1. CERTICAN [Suspect]
     Active Substance: EVEROLIMUS
     Indication: IMMUNOSUPPRESSION
     Dosage: 0.75 MG, DAILY
     Route: 048
     Dates: start: 201203
  2. HYZAAR PLUS [Concomitant]
     Indication: HYPERTENSION
     Dosage: 100-25 MG DAILY
     Route: 048
     Dates: end: 201304
  3. LANTUS [Concomitant]
     Active Substance: INSULIN GLARGINE
     Indication: TYPE 1 DIABETES MELLITUS
     Dosage: 10 IU, DAILY
     Route: 058
     Dates: start: 2006, end: 201305
  4. CERTICAN [Suspect]
     Active Substance: EVEROLIMUS
     Dosage: 0.50 MG, DAILY
     Route: 048
     Dates: end: 201304
  5. PROGRAF [Concomitant]
     Active Substance: TACROLIMUS\TACROLIMUS ANHYDROUS
     Indication: IMMUNOSUPPRESSION
     Dosage: 1 MG, DAILY
     Route: 048
     Dates: start: 20110516, end: 201305
  6. VALIXA [Concomitant]
     Active Substance: VALGANCICLOVIR
     Dosage: DAILY
     Route: 048
     Dates: start: 20110516, end: 201305

REACTIONS (16)
  - Respiratory arrest [Fatal]
  - Arrhythmia [Not Recovered/Not Resolved]
  - Asphyxia [Not Recovered/Not Resolved]
  - Diet refusal [Not Recovered/Not Resolved]
  - Influenza [Recovered/Resolved]
  - Haemoglobin decreased [Recovered/Resolved]
  - Hyperglycaemia [Not Recovered/Not Resolved]
  - Dyspnoea [Recovered/Resolved]
  - White blood cell count decreased [Recovered/Resolved]
  - Pyrexia [Recovered/Resolved]
  - Traumatic lung injury [Not Recovered/Not Resolved]
  - Pneumonia [Not Recovered/Not Resolved]
  - Headache [Recovered/Resolved]
  - Renal failure [Not Recovered/Not Resolved]
  - Blood creatinine increased [Not Recovered/Not Resolved]
  - Chills [Recovered/Resolved]

NARRATIVE: CASE EVENT DATE: 201208
